FAERS Safety Report 16190710 (Version 3)
Quarter: 2019Q2

REPORT INFORMATION
  Report Type: Report from Study
  Country: US (occurrence: US)
  Receive Date: 20190412
  Receipt Date: 20190506
  Transmission Date: 20190711
  Serious: Yes (Other)
  Sender: FDA-Public Use
  Company Number: US-SA-2019SA097902

PATIENT
  Age: 64 Year
  Sex: Male

DRUGS (1)
  1. INSULIN GLARGINE [Suspect]
     Active Substance: INSULIN GLARGINE
     Indication: DIABETES MELLITUS
     Dosage: 60 U, BID

REACTIONS (10)
  - Arthritis [Unknown]
  - Intervertebral disc degeneration [Unknown]
  - Apparent life threatening event [Unknown]
  - Peripheral swelling [Not Recovered/Not Resolved]
  - Intentional dose omission [Unknown]
  - Neuropathy peripheral [Unknown]
  - Foot amputation [Unknown]
  - Gait disturbance [Unknown]
  - Blister [Unknown]
  - Inappropriate schedule of product administration [Unknown]
